FAERS Safety Report 5796907-3 (Version None)
Quarter: 2008Q2

REPORT INFORMATION
  Report Type: 
  Country: None (occurrence: None)
  Receive Date: 20080618
  Receipt Date: 20070529
  Transmission Date: 20081010
  Serious: Yes (Hospitalization, Other)
  Sender: FDA-Public Use
  Company Number: 200713246US

PATIENT
  Age: 72 Year
  Sex: Female

DRUGS (12)
  1. LANTUS [Suspect]
     Indication: TYPE 1 DIABETES MELLITUS
  2. OPTICLIK [Suspect]
     Indication: TYPE 1 DIABETES MELLITUS
     Dates: start: 20060601
  3. OPTICLIK [Suspect]
     Indication: TYPE 1 DIABETES MELLITUS
  4. LISINOPRIL [Concomitant]
  5. SYNTHROID [Concomitant]
  6. ESOMEPRAZOLE [Concomitant]
  7. DILTIAZEM HCL [Concomitant]
  8. NOVOLOG [Concomitant]
  9. FEXOFENADINE (ALLEGRA /01314201/) [Concomitant]
  10. VITAMINS NOS (MVI) [Concomitant]
  11. CYANOCOBALAMIN (VIT B 12) [Concomitant]
  12. FEXOFENADINE [Concomitant]

REACTIONS (4)
  - BLOOD GLUCOSE DECREASED [None]
  - BLOOD GLUCOSE INCREASED [None]
  - HYPERGLYCAEMIA [None]
  - HYPOGLYCAEMIC UNCONSCIOUSNESS [None]
